FAERS Safety Report 8355297-2 (Version None)
Quarter: 2012Q2

REPORT INFORMATION
  Report Type: 
  Country: None (occurrence: None)
  Receive Date: 20120511
  Receipt Date: 20110613
  Transmission Date: 20120825
  Serious: No
  Sender: FDA-Public Use
  Company Number: US-TEVA-2011002928

PATIENT
  Sex: Male

DRUGS (3)
  1. ADDERALL 5 [Suspect]
  2. ADDERALL XR 10 [Suspect]
  3. NUVIGIL [Suspect]
     Indication: SLEEP APNOEA SYNDROME
     Dosage: 500 MILLIGRAM;
     Route: 048
     Dates: start: 20110401, end: 20110613

REACTIONS (4)
  - THROAT TIGHTNESS [None]
  - DRUG PRESCRIBING ERROR [None]
  - HEADACHE [None]
  - DYSPNOEA [None]
